FAERS Safety Report 12919078 (Version 2)
Quarter: 2016Q4

REPORT INFORMATION
  Report Type: Spontaneous
  Country: US (occurrence: US)
  Receive Date: 20161108
  Receipt Date: 20161227
  Transmission Date: 20170207
  Serious: No
  Sender: FDA-Public Use
  Company Number: US-ASTRAZENECA-2016SF13940

PATIENT
  Age: 907 Month
  Sex: Female

DRUGS (6)
  1. SYMBICORT [Suspect]
     Active Substance: BUDESONIDE\FORMOTEROL FUMARATE DIHYDRATE
     Indication: EMPHYSEMA
     Dosage: 160/4.5 MCG TWO PUFFS TWICE DAILY
     Route: 055
     Dates: start: 20161008
  2. OXYGEN. [Concomitant]
     Active Substance: OXYGEN
     Dosage: UNKNOWN
     Route: 065
  3. BROMIDE [Concomitant]
     Dosage: UNKNOWN
     Route: 065
  4. SYMBICORT [Suspect]
     Active Substance: BUDESONIDE\FORMOTEROL FUMARATE DIHYDRATE
     Indication: ASTHMA
     Dosage: 160/4.5 MCG TWO PUFFS TWICE DAILY
     Route: 055
     Dates: start: 20161008
  5. SYMBICORT [Suspect]
     Active Substance: BUDESONIDE\FORMOTEROL FUMARATE DIHYDRATE
     Indication: ASTHMA
     Route: 055
     Dates: start: 2010
  6. SYMBICORT [Suspect]
     Active Substance: BUDESONIDE\FORMOTEROL FUMARATE DIHYDRATE
     Indication: EMPHYSEMA
     Route: 055
     Dates: start: 2010

REACTIONS (13)
  - Dizziness [Unknown]
  - Drug dose omission [Unknown]
  - Oropharyngeal pain [Unknown]
  - Dry mouth [Unknown]
  - Memory impairment [Unknown]
  - Wheezing [Unknown]
  - Malaise [Unknown]
  - Device malfunction [Unknown]
  - Wound [Unknown]
  - Dysphonia [Unknown]
  - Device issue [Unknown]
  - Gait disturbance [Unknown]
  - Intentional product misuse [Unknown]

NARRATIVE: CASE EVENT DATE: 201610
